FAERS Safety Report 6014846-X (Version None)
Quarter: 2008Q4

REPORT INFORMATION
  Report Type: 
  Country: None (occurrence: None)
  Receive Date: 20081219
  Receipt Date: 20081209
  Transmission Date: 20090506
  Serious: Yes (Hospitalization, Other)
  Sender: FDA-Public Use
  Company Number: JP-PFIZER INC-2008154758

PATIENT

DRUGS (3)
  1. SALAZOPYRIN [Suspect]
     Dosage: UNK
     Route: 048
     Dates: start: 20081016, end: 20081023
  2. SALAZOPYRIN [Suspect]
     Dosage: UNK
     Dates: start: 20081024, end: 20081025
  3. BIO THREE [Concomitant]
     Dosage: UNK

REACTIONS (2)
  - COLITIS ULCERATIVE [None]
  - PANCREATITIS [None]
